FAERS Safety Report 19421377 (Version 2)
Quarter: 2021Q2

REPORT INFORMATION
  Report Type: Report from Study
  Country: US (occurrence: US)
  Receive Date: 20210615
  Receipt Date: 20210628
  Transmission Date: 20210717
  Serious: Yes (Other)
  Sender: FDA-Public Use
  Company Number: US-SEATTLE GENETICS-2021SGN01666

PATIENT
  Sex: Female

DRUGS (3)
  1. TUCATINIB [Suspect]
     Active Substance: TUCATINIB
     Dosage: UNK
  2. TUCATINIB [Suspect]
     Active Substance: TUCATINIB
     Indication: BREAST CANCER
     Dosage: UNK
  3. HERCEPTIN [Suspect]
     Active Substance: TRASTUZUMAB
     Dosage: UNK, Q3WEEKS

REACTIONS (10)
  - Skin exfoliation [Unknown]
  - Fatigue [Unknown]
  - Metastases to central nervous system [Unknown]
  - Blood creatinine increased [Unknown]
  - Nausea [Unknown]
  - Product dose omission issue [Unknown]
  - Nail disorder [Unknown]
  - Neoplasm progression [Unknown]
  - Magnetic resonance imaging head abnormal [Unknown]
  - Laboratory test abnormal [Unknown]
